FAERS Safety Report 4835466-6 (Version None)
Quarter: 2005Q4

REPORT INFORMATION
  Report Type: 
  Country: None (occurrence: None)
  Receive Date: 20051122
  Receipt Date: 20051122
  Transmission Date: 20060501
  Serious: Yes (Other)
  Sender: FDA-Public Use
  Company Number: None

PATIENT
  Age: 16 Year
  Sex: Male

DRUGS (2)
  1. CORICIDIN [Suspect]
     Dosage: 32 TABLETS ORAL
     Route: 048
     Dates: start: 20051110, end: 20051110
  2. MARIJUANA [Suspect]
     Dosage: INHALATION
     Route: 055
     Dates: start: 20051110, end: 20051110

REACTIONS (4)
  - ABNORMAL BEHAVIOUR [None]
  - DRUG ABUSER [None]
  - FEELING ABNORMAL [None]
  - OVERDOSE [None]
